FAERS Safety Report 4542389-9 (Version None)
Quarter: 2004Q4

REPORT INFORMATION
  Report Type: 
  Country: None (occurrence: None)
  Receive Date: 20041230
  Receipt Date: 20041221
  Transmission Date: 20050328
  Serious: Yes (Other)
  Sender: FDA-Public Use
  Company Number: US-ABBOTT-04P-163-0284183-00

PATIENT
  Sex: Female
  Weight: 77.18 kg

DRUGS (9)
  1. HUMIRA [Suspect]
     Indication: RHEUMATOID ARTHRITIS
     Route: 058
     Dates: start: 20030101, end: 20041001
  2. WARFARIN SODIUM [Concomitant]
     Indication: ATRIAL FIBRILLATION
     Dosage: 5 MG (5 D)/7.5 (2D)
     Route: 048
     Dates: start: 20040101
  3. METOPROLOL SUCCINATE [Concomitant]
     Indication: ATRIAL FIBRILLATION
     Route: 048
     Dates: start: 20040101
  4. AMLODIPINE BESYLATE [Concomitant]
     Indication: BLOOD PRESSURE INCREASED
     Route: 048
     Dates: start: 20030101
  5. ASPIRIN [Concomitant]
     Indication: CARDIAC DISORDER
     Route: 048
     Dates: start: 20030101
  6. ATORVASTATIN [Concomitant]
     Indication: BLOOD CHOLESTEROL INCREASED
     Route: 048
     Dates: start: 20040701
  7. ALENDRONATE SODIUM [Concomitant]
     Indication: OSTEOPOROSIS PROPHYLAXIS
     Route: 048
  8. CALCIUM CARBONATE [Concomitant]
     Indication: OSTEOPOROSIS
     Route: 048
  9. PREDNISONE [Concomitant]
     Indication: STEROID THERAPY
     Route: 048
     Dates: start: 20041001

REACTIONS (8)
  - ABDOMINAL PAIN [None]
  - BLOOD CHOLESTEROL INCREASED [None]
  - BLOOD URINE PRESENT [None]
  - HAEMORRHAGE [None]
  - KIDNEY ENLARGEMENT [None]
  - NEOPLASM [None]
  - RENAL HAEMORRHAGE [None]
  - URETERIC STENOSIS [None]
